FAERS Safety Report 23303160 (Version 2)
Quarter: 2023Q4

REPORT INFORMATION
  Report Type: Report from Study
  Country: US (occurrence: US)
  Receive Date: 20231215
  Receipt Date: 20231222
  Transmission Date: 20240110
  Serious: Yes (Hospitalization, Other)
  Sender: FDA-Public Use
  Company Number: US-SUN PHARMACEUTICAL INDUSTRIES LTD-2023R1-424104

PATIENT
  Age: 57 Year
  Sex: Female

DRUGS (2)
  1. CLOZAPINE [Suspect]
     Active Substance: CLOZAPINE
     Indication: Schizoaffective disorder
     Dosage: 50 MG IN THE MORNING,100 MG AT BEDTIME
     Route: 065
  2. CLOZAPINE [Suspect]
     Active Substance: CLOZAPINE
     Dosage: 100MG IN THE MORNING AND 50 MG AT NIGHT
     Route: 065

REACTIONS (1)
  - Schizoaffective disorder [Recovered/Resolved]

NARRATIVE: CASE EVENT DATE: 20231026
